FAERS Safety Report 7407935-6 (Version None)
Quarter: 2011Q2

REPORT INFORMATION
  Report Type: 
  Country: None (occurrence: None)
  Receive Date: 20110412
  Receipt Date: 20110407
  Transmission Date: 20111010
  Serious: No
  Sender: FDA-Public Use
  Company Number: US-PFIZER INC-2011077237

PATIENT
  Sex: Female

DRUGS (1)
  1. PROVERA [Suspect]
     Dosage: 10 MG, ONE WEEK/MONTH
     Dates: start: 20110226, end: 20110101

REACTIONS (1)
  - GINGIVAL RECESSION [None]
